FAERS Safety Report 16325241 (Version 1)
Quarter: 2019Q2

REPORT INFORMATION
  Report Type: Spontaneous
  Country: US (occurrence: US)
  Receive Date: 20190411
  Receipt Date: 20190411
  Transmission Date: 20190711
  Serious: No
  Sender: FDA-Public Use
  Company Number: None

PATIENT
  Age: 69 Year
  Sex: Female

DRUGS (1)
  1. ENBREL [Suspect]
     Active Substance: ETANERCEPT
     Indication: PSORIASIS
     Route: 058
     Dates: start: 201902

REACTIONS (6)
  - Arthralgia [None]
  - Peripheral swelling [None]
  - Myalgia [None]
  - Cough [None]
  - Rhinorrhoea [None]
  - Therapy cessation [None]
